FAERS Safety Report 4476061-0 (Version None)
Quarter: 2004Q4

REPORT INFORMATION
  Report Type: 
  Country: None (occurrence: None)
  Receive Date: 20041012
  Receipt Date: 20041004
  Transmission Date: 20050328
  Serious: Yes (Hospitalization)
  Sender: FDA-Public Use
  Company Number: CIP04002122

PATIENT
  Age: 52 Year
  Sex: Female

DRUGS (3)
  1. ACTONEL [Suspect]
     Indication: OSTEOPOROSIS
     Dosage: 35 MG ONCE WEEKLY, ORAL
     Route: 048
     Dates: start: 20040918, end: 20040926
  2. PAXIL [Concomitant]
  3. CALCIUM [Concomitant]

REACTIONS (2)
  - CHEST PAIN [None]
  - DIARRHOEA [None]
